FAERS Safety Report 7460145-9 (Version None)
Quarter: 2011Q2

REPORT INFORMATION
  Report Type: 
  Country: None (occurrence: None)
  Receive Date: 20110505
  Receipt Date: 20110428
  Transmission Date: 20111010
  Serious: Yes (Death, Hospitalization, Other)
  Sender: FDA-Public Use
  Company Number: US-ELI_LILLY_AND_COMPANY-US201002003697

PATIENT
  Sex: Male
  Weight: 95.238 kg

DRUGS (3)
  1. BYETTA [Suspect]
     Dosage: UNK, UNK
     Dates: start: 20071001, end: 20080601
  2. TUMS [Concomitant]
     Indication: DYSPEPSIA
     Dosage: UNK
     Dates: start: 20000101, end: 20080702
  3. TYLENOL                                 /SCH/ [Concomitant]
     Indication: PAIN
     Dosage: UNK
     Dates: start: 20000101, end: 20080702

REACTIONS (1)
  - PANCREATIC CARCINOMA METASTATIC [None]
